FAERS Safety Report 9943537 (Version 1)
Quarter: 2014Q1

REPORT INFORMATION
  Report Type: Spontaneous
  Country: GB (occurrence: GB)
  Receive Date: 20140303
  Receipt Date: 20140303
  Transmission Date: 20141002
  Serious: Yes (Other)
  Sender: FDA-Public Use
  Company Number: GB-WATSON-2014-03293

PATIENT
  Age: 42 Year
  Sex: Female
  Weight: 102 kg

DRUGS (2)
  1. SERTRALINE (UNKNOWN) [Suspect]
     Indication: DEPRESSION
     Dosage: 50 MG, UNK
     Route: 048
  2. AMLODIPINE [Concomitant]
     Indication: PRODUCT USED FOR UNKNOWN INDICATION
     Dosage: UNK
     Route: 065

REACTIONS (2)
  - Tremor [Not Recovered/Not Resolved]
  - Loss of libido [Not Recovered/Not Resolved]
